FAERS Safety Report 11516696 (Version 2)
Quarter: 2015Q3

REPORT INFORMATION
  Report Type: Report from Study
  Country: PA (occurrence: PA)
  Receive Date: 20150917
  Receipt Date: 20150930
  Transmission Date: 20151125
  Serious: No
  Sender: FDA-Public Use
  Company Number: PHHY2015PA111399

PATIENT
  Age: 62 Year
  Sex: Female
  Weight: 66 kg

DRUGS (2)
  1. SANDOSTATIN LAR DEPOT [Suspect]
     Active Substance: OCTREOTIDE ACETATE
     Indication: PRODUCT USED FOR UNKNOWN INDICATION
     Dosage: 1 DF, QMO
     Route: 065
     Dates: start: 20150527
  2. METFORMIN [Concomitant]
     Active Substance: METFORMIN HYDROCHLORIDE
     Indication: PRODUCT USED FOR UNKNOWN INDICATION
     Dosage: 500 MG, BID
     Route: 048

REACTIONS (10)
  - Heart rate decreased [Recovered/Resolved]
  - Pain in extremity [Unknown]
  - Muscular weakness [Unknown]
  - Pain [Recovered/Resolved]
  - Asthenia [Unknown]
  - Nasopharyngitis [Recovering/Resolving]
  - Malaise [Recovered/Resolved]
  - Feeling abnormal [Recovered/Resolved]
  - Gait disturbance [Unknown]
  - Application site pain [Unknown]

NARRATIVE: CASE EVENT DATE: 20150904
